FAERS Safety Report 12776446 (Version 1)
Quarter: 2016Q3

REPORT INFORMATION
  Report Type: Spontaneous
  Country: DK (occurrence: DK)
  Receive Date: 20160923
  Receipt Date: 20160923
  Transmission Date: 20161109
  Serious: Yes (Hospitalization)
  Sender: FDA-Public Use
  Company Number: DK-ASTRAZENECA-2016SF00235

PATIENT
  Age: 71 Year
  Sex: Male

DRUGS (2)
  1. BRETARIS GENUAIR [Suspect]
     Active Substance: ACLIDINIUM BROMIDE
     Indication: CHRONIC OBSTRUCTIVE PULMONARY DISEASE
     Dosage: 322 UG 1 PUFF TWICE A DAY
     Route: 055
     Dates: start: 20160711
  2. RELVAR ELLIPTA [Concomitant]
     Active Substance: FLUTICASONE FUROATE\VILANTEROL TRIFENATATE
     Indication: CHRONIC OBSTRUCTIVE PULMONARY DISEASE
     Dates: start: 20160711

REACTIONS (7)
  - Muscle spasms [Recovering/Resolving]
  - Myalgia [Unknown]
  - Tachycardia [Recovering/Resolving]
  - Chills [Unknown]
  - Tachypnoea [Unknown]
  - Peripheral coldness [Recovering/Resolving]
  - Tremor [Recovering/Resolving]

NARRATIVE: CASE EVENT DATE: 20160914
